FAERS Safety Report 20150443 (Version 1)
Quarter: 2021Q4

REPORT INFORMATION
  Report Type: Other
  Country: US (occurrence: None)
  Receive Date: 20211206
  Receipt Date: 20211206
  Transmission Date: 20220303
  Serious: Yes (Hospitalization, Other)
  Sender: FDA-Public Use
  Company Number: US-ROCHE-2964674

PATIENT
  Age: 67 Year
  Sex: Female
  Weight: 54.480 kg

DRUGS (1)
  1. OCREVUS [Suspect]
     Active Substance: OCRELIZUMAB
     Indication: Multiple sclerosis
     Route: 065

REACTIONS (3)
  - Arterial occlusive disease [Unknown]
  - Ulcer [Unknown]
  - Pneumonia [Unknown]

NARRATIVE: CASE EVENT DATE: 20211101
